FAERS Safety Report 10090593 (Version 1)
Quarter: 2014Q2

REPORT INFORMATION
  Report Type: Spontaneous
  Country: DK (occurrence: FR)
  Receive Date: 20140421
  Receipt Date: 20140421
  Transmission Date: 20141212
  Serious: Yes (Hospitalization)
  Sender: FDA-Public Use
  Company Number: FR-FRI-1000066612

PATIENT
  Age: 61 Year
  Sex: Female

DRUGS (4)
  1. ESCITALOPRAM [Suspect]
  2. LEXOMIL ROCHE [Suspect]
     Dosage: 6 MG
     Route: 048
  3. STABLON [Suspect]
  4. EUPHYTOSE [Suspect]

REACTIONS (1)
  - Coma [Recovered/Resolved]
